FAERS Safety Report 7554773-X (Version None)
Quarter: 2011Q2

REPORT INFORMATION
  Report Type: 
  Country: None (occurrence: None)
  Receive Date: 20110617
  Receipt Date: 20110614
  Transmission Date: 20111010
  Serious: Yes (Other)
  Sender: FDA-Public Use
  Company Number: FR-BRISTOL-MYERS SQUIBB COMPANY-15838055

PATIENT
  Age: 76 Year
  Sex: Female

DRUGS (1)
  1. ORENCIA [Suspect]
     Indication: RHEUMATOID ARTHRITIS
     Dosage: NUMBER OF INF: 25 WITHIN 2.5 YEARS
     Route: 042
     Dates: start: 20090226, end: 20110501

REACTIONS (1)
  - NEUROPATHY PERIPHERAL [None]
